FAERS Safety Report 20314940 (Version 1)
Quarter: 2022Q1

REPORT INFORMATION
  Report Type: Other
  Country: US (occurrence: None)
  Receive Date: 20220110
  Receipt Date: 20220110
  Transmission Date: 20220423
  Serious: No
  Sender: FDA-Public Use
  Company Number: US-ROCHE-2955878

PATIENT
  Age: 57 Year
  Sex: Female

DRUGS (5)
  1. RITUXIMAB [Suspect]
     Active Substance: RITUXIMAB
     Indication: Splenic marginal zone lymphoma
     Route: 041
  2. RITUXIMAB [Suspect]
     Active Substance: RITUXIMAB
     Indication: Splenic marginal zone lymphoma
  3. FLUOROURACIL [Concomitant]
     Active Substance: FLUOROURACIL
     Indication: Rectal adenocarcinoma
     Route: 042
  4. LEUCOVORIN [Concomitant]
     Active Substance: LEUCOVORIN
     Indication: Rectal adenocarcinoma
  5. OXALIPLATIN [Concomitant]
     Active Substance: OXALIPLATIN
     Indication: Rectal adenocarcinoma

REACTIONS (1)
  - Infusion related reaction [Unknown]
